FAERS Safety Report 8413577-6 (Version None)
Quarter: 2012Q2

REPORT INFORMATION
  Report Type: 
  Country: None (occurrence: None)
  Receive Date: 20120605
  Receipt Date: 20120525
  Transmission Date: 20120825
  Serious: Yes (Other)
  Sender: FDA-Public Use
  Company Number: ES-ELI_LILLY_AND_COMPANY-ES201205010188

PATIENT
  Sex: Female

DRUGS (1)
  1. FORTEO [Suspect]
     Dosage: UNK UNK, UNKNOWN
     Route: 065
     Dates: start: 20111201, end: 20120511

REACTIONS (8)
  - BLOOD ALKALINE PHOSPHATASE INCREASED [None]
  - MUSCLE SPASMS [None]
  - RED BLOOD CELL COUNT DECREASED [None]
  - DECREASED APPETITE [None]
  - METASTASES TO BONE [None]
  - HYPERHIDROSIS [None]
  - VOMITING [None]
  - HAEMOGLOBIN DECREASED [None]
